FAERS Safety Report 19919111 (Version 2)
Quarter: 2021Q4

REPORT INFORMATION
  Report Type: Spontaneous
  Country: US (occurrence: US)
  Receive Date: 20211005
  Receipt Date: 20211011
  Transmission Date: 20220304
  Serious: No
  Sender: FDA-Public Use
  Company Number: US-JNJFOC-20210950722

PATIENT
  Age: 51 Year
  Sex: Female
  Weight: 79.38 kg

DRUGS (4)
  1. TYLENOL [Suspect]
     Active Substance: ACETAMINOPHEN
     Indication: Headache
     Route: 065
     Dates: start: 2021
  2. COVID-19 VACCINE [Concomitant]
     Indication: Product used for unknown indication
     Dosage: AT THE TOP OF LEFT UPPER ARM?FIRST DOSE
     Route: 065
     Dates: start: 20210228
  3. COVID-19 VACCINE [Concomitant]
     Dosage: SECOND DOSE
     Route: 065
     Dates: start: 20210322
  4. COVID-19 VACCINE [Concomitant]
     Dosage: THIRD DOSE
     Route: 065
     Dates: start: 20210818

REACTIONS (1)
  - Drug ineffective [Unknown]

NARRATIVE: CASE EVENT DATE: 20210101
